FAERS Safety Report 8921060 (Version 1)
Quarter: 2012Q4

REPORT INFORMATION
  Report Type: 
  Country: SE (occurrence: SE)
  Receive Date: 20121121
  Receipt Date: 20121121
  Transmission Date: 20130627
  Serious: Yes (Hospitalization)
  Sender: FDA-Public Use
  Company Number: SE-PFIZER INC-2012288388

PATIENT
  Age: 56 Year
  Sex: Male
  Weight: 123 kg

DRUGS (13)
  1. GENOTROPIN [Suspect]
     Indication: GROWTH HORMONE DEFICIENCY
     Dosage: 0.17 mg, 1x/day, 7 injections/week
     Route: 058
     Dates: start: 19990817
  2. CORTISONE ACETATE [Concomitant]
     Indication: ACTH DECREASED
     Dosage: UNK
     Dates: start: 19680501
  3. DESMOPRESSIN [Concomitant]
     Indication: ADH DECREASED
     Dosage: UNK
     Dates: start: 19680501
  4. PURINOL ^HORNER^ [Concomitant]
     Indication: GOUT
     Dosage: UNK
     Dates: start: 19810201
  5. GAMMAGLOBULIN ^KABI^ [Concomitant]
     Indication: BACTERIAL INFECTION
     Dosage: UNK
     Dates: start: 19971001
  6. NASONEX [Concomitant]
     Indication: NOSE BLEED
     Dosage: UNK
     Dates: start: 20000915
  7. LEVAXIN [Concomitant]
     Indication: BLOOD THYROID STIMULATING HORMONE DECREASED
     Dosage: UNK
     Dates: start: 20030221
  8. LEVAXIN [Concomitant]
     Indication: PRIMARY HYPOTHYROIDISM
  9. FURIX [Concomitant]
     Indication: DIURETIC THERAPY
     Dosage: UNK
     Dates: start: 20030725
  10. FURIX [Concomitant]
     Indication: FLUID RETENTION
  11. TESTOSTERON [Concomitant]
     Indication: LUTEINISING HORMONE DEFICIENCY
     Dosage: UNK
     Dates: start: 19710101
  12. TESTOSTERON [Concomitant]
     Indication: FOLLICLE-STIMULATING HORMONE DEFICIENCY
  13. TESTOSTERON [Concomitant]
     Indication: TESTICULAR HYPOGONADISM

REACTIONS (1)
  - Pityriasis rosea [Unknown]
